FAERS Safety Report 7991256-7 (Version None)
Quarter: 2011Q4

REPORT INFORMATION
  Report Type: 
  Country: None (occurrence: None)
  Receive Date: 20111219
  Receipt Date: 20111214
  Transmission Date: 20120403
  Serious: Yes (Hospitalization)
  Sender: FDA-Public Use
  Company Number: IT-GLAXOSMITHKLINE-B0770115A

PATIENT
  Sex: Female

DRUGS (5)
  1. LANOXIN [Suspect]
     Indication: ATRIAL FIBRILLATION
     Dosage: .125MG PER DAY
     Route: 048
     Dates: start: 20110623, end: 20110623
  2. ASPIRIN [Concomitant]
     Dosage: 1UNIT PER DAY
     Route: 048
  3. AROMASIN [Concomitant]
     Indication: BREAST CANCER
     Dosage: 1UNIT PER DAY
     Route: 048
     Dates: start: 20100501
  4. REPAGLINIDE [Concomitant]
     Indication: TYPE 2 DIABETES MELLITUS
     Dosage: 1UNIT PER DAY
     Route: 048
  5. RAMIPRIL [Concomitant]
     Dosage: 1UNIT PER DAY
     Route: 048

REACTIONS (6)
  - VOMITING [None]
  - ELECTROCARDIOGRAM REPOLARISATION ABNORMALITY [None]
  - ATRIAL FIBRILLATION [None]
  - PO2 DECREASED [None]
  - OVERDOSE [None]
  - SENSORY LOSS [None]
